FAERS Safety Report 17553961 (Version 9)
Quarter: 2020Q3

REPORT INFORMATION
  Report Type: Report from Study
  Country: US (occurrence: US)
  Receive Date: 20200318
  Receipt Date: 20200902
  Transmission Date: 20201102
  Serious: Yes (Death, Hospitalization)
  Sender: FDA-Public Use
  Company Number: NVSC2020US077196

PATIENT
  Sex: Female
  Weight: 63.49 kg

DRUGS (6)
  1. TREPROSTINIL. [Suspect]
     Active Substance: TREPROSTINIL
     Dosage: 63 NG/KG/MIN,  (CONTINUOUS)
     Route: 042
     Dates: start: 20200220
  2. TREPROSTINIL. [Suspect]
     Active Substance: TREPROSTINIL
     Dosage: 46 NG/KG/MIN,  (CONTINUOUS)
     Route: 042
  3. TREPROSTINIL. [Suspect]
     Active Substance: TREPROSTINIL
     Indication: PULMONARY ARTERIAL HYPERTENSION
     Dosage: 40 NG/KG/MIN (CONTINUOUS)
     Route: 042
     Dates: start: 20200220
  4. OPSUMIT [Concomitant]
     Active Substance: MACITENTAN
     Indication: PRODUCT USED FOR UNKNOWN INDICATION
     Dosage: UNK UNK, UNKNOWN
     Route: 065
  5. SILDENAFIL CITRATE. [Concomitant]
     Active Substance: SILDENAFIL CITRATE
     Indication: PRODUCT USED FOR UNKNOWN INDICATION
     Dosage: UNK UNK, UNKNOWN
     Route: 065
  6. TREPROSTINIL. [Suspect]
     Active Substance: TREPROSTINIL
     Dosage: 40 NG/KG/MIN,  (CONTINUOUS)
     Route: 042

REACTIONS (10)
  - Dyspnoea [Unknown]
  - Death [Fatal]
  - Pulmonary hypertension [Unknown]
  - Productive cough [Unknown]
  - Sputum discoloured [Unknown]
  - Crepitations [Unknown]
  - Cough [Unknown]
  - Pain [Unknown]
  - Headache [Unknown]
  - Pyrexia [Unknown]
